FAERS Safety Report 9677144 (Version 1)
Quarter: 2013Q4

REPORT INFORMATION
  Report Type: Spontaneous
  Country: JP (occurrence: JP)
  Receive Date: 20131108
  Receipt Date: 20131108
  Transmission Date: 20140711
  Serious: Yes (Other)
  Sender: FDA-Public Use
  Company Number: JP-PFIZER INC-2013314333

PATIENT
  Age: 31 Year
  Sex: Female

DRUGS (16)
  1. DOXORUBICIN HCL [Suspect]
     Indication: PRIMARY MEDIASTINAL LARGE B-CELL LYMPHOMA
     Dosage: 50 MG/M2, UNK
  2. CYTARABINE [Suspect]
     Indication: PRIMARY MEDIASTINAL LARGE B-CELL LYMPHOMA
     Dosage: 2 G/M2
  3. IFOSFAMIDE [Suspect]
     Indication: PRIMARY MEDIASTINAL LARGE B-CELL LYMPHOMA
     Dosage: 1.500 MG/M2, UNK
  4. CYCLOPHOSPHAMIDE [Suspect]
     Indication: PRIMARY MEDIASTINAL LARGE B-CELL LYMPHOMA
     Dosage: 0.75 G/M2UNK
  5. CYCLOPHOSPHAMIDE [Suspect]
     Dosage: 1.2 G/M2 (TWO COURSES)
  6. CYCLOPHOSPHAMIDE [Suspect]
     Dosage: 1.8 G/M^2 (FOR TWO DAYS)
  7. RITUXIMAB [Concomitant]
     Indication: PRIMARY MEDIASTINAL LARGE B-CELL LYMPHOMA
     Dosage: 375 MG/M2, UNK
  8. VINCRISTINE [Concomitant]
     Indication: PRIMARY MEDIASTINAL LARGE B-CELL LYMPHOMA
     Dosage: 2 MG,TOTAL UNK
  9. PREDNISOLONE [Concomitant]
     Indication: PRIMARY MEDIASTINAL LARGE B-CELL LYMPHOMA
  10. CARBOPLATIN [Concomitant]
     Indication: PRIMARY MEDIASTINAL LARGE B-CELL LYMPHOMA
     Dosage: 300 MG/M2, UNK
  11. CARBOPLATIN [Concomitant]
     Dosage: 300 MG/M2, UNK
  12. ETOPOSIDE [Concomitant]
     Indication: PRIMARY MEDIASTINAL LARGE B-CELL LYMPHOMA
     Dosage: 100 MG/M2, UNK
  13. ETOPOSIDE [Concomitant]
     Dosage: 100 MG/M2, UNK
  14. ETOPOSIDE [Concomitant]
     Dosage: 20 MG/KG, UNK
  15. DEXAMETHASONE [Concomitant]
  16. RANIMUSTINE [Concomitant]
     Indication: PRIMARY MEDIASTINAL LARGE B-CELL LYMPHOMA
     Dosage: 250 MG/M2, FOR TWO DAYSUNK

REACTIONS (2)
  - Cardiotoxicity [Recovering/Resolving]
  - Cardiac failure [Recovered/Resolved]
